FAERS Safety Report 12217298 (Version 1)
Quarter: 2016Q1

REPORT INFORMATION
  Report Type: Report from Study
  Country: US (occurrence: US)
  Receive Date: 20160329
  Receipt Date: 20160329
  Transmission Date: 20160526
  Serious: Yes (Life-Threatening, Hospitalization, Other)
  Sender: FDA-Public Use
  Company Number: US-VIIV HEALTHCARE LIMITED-US2016GSK041377

PATIENT
  Age: 45 Year
  Sex: Female

DRUGS (10)
  1. PYRAZINAMIDE. [Concomitant]
     Active Substance: PYRAZINAMIDE
  2. ISONIAZID. [Suspect]
     Active Substance: ISONIAZID
     Dosage: UNK, QD
     Dates: end: 20160129
  3. ETHAMBUTOL [Concomitant]
     Active Substance: ETHAMBUTOL HYDROCHLORIDE
  4. ZIDOVUDINE. [Concomitant]
     Active Substance: ZIDOVUDINE
  5. LOPINAVIR [Suspect]
     Active Substance: LOPINAVIR
     Dosage: 1000 MG, BID
     Route: 048
     Dates: start: 20150511, end: 20160121
  6. TENOFOVIR [Concomitant]
     Active Substance: TENOFOVIR
  7. LAMIVUDINE. [Concomitant]
     Active Substance: LAMIVUDINE
     Dosage: UNK
     Dates: end: 20160121
  8. ABACAVIR SULPHATE [Suspect]
     Active Substance: ABACAVIR
     Indication: HIV INFECTION
     Dosage: UNK, BID
     Route: 048
     Dates: end: 20160121
  9. RIFABUTIN. [Suspect]
     Active Substance: RIFABUTIN
     Indication: TUBERCULOSIS
     Dosage: 150 MG, QD
     Dates: start: 20151030, end: 20160129
  10. RITONAVIR. [Suspect]
     Active Substance: RITONAVIR

REACTIONS (2)
  - Acute hepatitis B [Recovered/Resolved]
  - Aspartate aminotransferase increased [Recovered/Resolved]

NARRATIVE: CASE EVENT DATE: 20160129
